FAERS Safety Report 21373500 (Version 2)
Quarter: 2022Q3

REPORT INFORMATION
  Report Type: Spontaneous
  Country: US (occurrence: US)
  Receive Date: 20220925
  Receipt Date: 20220929
  Transmission Date: 20221027
  Serious: No
  Sender: FDA-Public Use
  Company Number: US-ELI_LILLY_AND_COMPANY-US202209010829

PATIENT
  Sex: Female

DRUGS (2)
  1. FORTEO [Suspect]
     Active Substance: TERIPARATIDE
     Indication: Osteoporosis
     Dosage: 20 UG, DAILY
     Route: 065
  2. FORTEO [Suspect]
     Active Substance: TERIPARATIDE
     Dosage: 20 UG, DAILY
     Route: 065

REACTIONS (6)
  - Injection site haemorrhage [Unknown]
  - Balance disorder [Unknown]
  - Weight decreased [Unknown]
  - Nightmare [Unknown]
  - Stress [Unknown]
  - Asthenia [Unknown]

NARRATIVE: CASE EVENT DATE: 20220920
